FAERS Safety Report 23994426 (Version 2)
Quarter: 2024Q3

REPORT INFORMATION
  Report Type: Report from Study
  Country: FR (occurrence: FR)
  Receive Date: 20240620
  Receipt Date: 20240709
  Transmission Date: 20241017
  Serious: Yes (Death, Life-Threatening, Hospitalization)
  Sender: BIOGEN
  Company Number: FR-BIOGEN-2024BI01268492

PATIENT
  Age: 30 Year
  Sex: Female
  Weight: 56 kg

DRUGS (10)
  1. OMAVELOXOLONE [Suspect]
     Active Substance: OMAVELOXOLONE
     Indication: Friedreich^s ataxia
     Dosage: 3 CAPSULES OF 50MG, SINGLE ADMIN
     Route: 050
     Dates: start: 20240322, end: 20240606
  2. OMAVELOXOLONE [Suspect]
     Active Substance: OMAVELOXOLONE
     Dosage: 3 CAPSULES OF 50MG, SINGLE ADMIN
     Route: 050
     Dates: start: 20240322, end: 20240606
  3. ENTRESTO [Concomitant]
     Active Substance: SACUBITRIL\VALSARTAN
     Indication: Product used for unknown indication
     Route: 050
  4. AMIODARONE [Concomitant]
     Active Substance: AMIODARONE
     Indication: Product used for unknown indication
     Route: 050
     Dates: start: 20240203
  5. FUROSEMIDE [Concomitant]
     Active Substance: FUROSEMIDE
     Indication: Product used for unknown indication
     Route: 050
     Dates: start: 20240203
  6. DAPAGLIFLOZIN [Concomitant]
     Active Substance: DAPAGLIFLOZIN
     Indication: Product used for unknown indication
     Route: 050
     Dates: start: 20231002
  7. SPIRONOLACTONE [Concomitant]
     Active Substance: SPIRONOLACTONE
     Indication: Product used for unknown indication
     Route: 050
     Dates: start: 20220203
  8. BISOPROLOL [Concomitant]
     Active Substance: BISOPROLOL\BISOPROLOL FUMARATE
     Indication: Product used for unknown indication
     Route: 050
     Dates: start: 20150201
  9. LEVOTHYROXINE [Concomitant]
     Active Substance: LEVOTHYROXINE\LEVOTHYROXINE SODIUM
     Indication: Product used for unknown indication
     Route: 050
     Dates: start: 20190101
  10. IDEBENONE [Concomitant]
     Active Substance: IDEBENONE
     Indication: Product used for unknown indication
     Dosage: 300MG, 3 TABLETS PER DAY
     Route: 050
     Dates: start: 20100303

REACTIONS (5)
  - Cardiogenic shock [Fatal]
  - Gastroenteritis [Unknown]
  - Hypotension [Unknown]
  - Asthenia [Unknown]
  - Vomiting [Unknown]

NARRATIVE: CASE EVENT DATE: 20240601
